FAERS Safety Report 5215433-3 (Version None)
Quarter: 2007Q1

REPORT INFORMATION
  Report Type: 
  Country: None (occurrence: None)
  Receive Date: 20070123
  Receipt Date: 20070112
  Transmission Date: 20070707
  Serious: Yes (Other)
  Sender: FDA-Public Use
  Company Number: IE-ABBOTT-07P-229-0355739-00

PATIENT
  Sex: Female

DRUGS (3)
  1. CLARITHROMYCIN [Suspect]
     Indication: PNEUMONIA
     Route: 042
     Dates: start: 20070111, end: 20070111
  2. CLARITHROMYCIN [Suspect]
     Route: 048
     Dates: start: 20070108, end: 20070110
  3. CLARITHROMYCIN [Suspect]
     Route: 042
     Dates: start: 20070104, end: 20070108

REACTIONS (4)
  - BLOOD CREATININE INCREASED [None]
  - CARDIAC ARREST [None]
  - ELECTROCARDIOGRAM QT PROLONGED [None]
  - VENTRICULAR FIBRILLATION [None]
